FAERS Safety Report 6580567-8 (Version None)
Quarter: 2010Q1

REPORT INFORMATION
  Report Type: 
  Country: None (occurrence: None)
  Receive Date: 20100212
  Receipt Date: 20100128
  Transmission Date: 20100710
  Serious: Yes (Hospitalization)
  Sender: FDA-Public Use
  Company Number: GB-PFIZER INC-2010011483

PATIENT
  Sex: Female

DRUGS (2)
  1. CABERGOLINE [Suspect]
  2. SINEMET [Interacting]
     Indication: PARKINSON'S DISEASE

REACTIONS (2)
  - DRUG INTERACTION [None]
  - PARKINSON'S DISEASE [None]
